FAERS Safety Report 9311386 (Version 1)
Quarter: 2013Q2

REPORT INFORMATION
  Report Type: Spontaneous
  Country: FR (occurrence: FR)
  Receive Date: 20130528
  Receipt Date: 20130528
  Transmission Date: 20140414
  Serious: Yes (Hospitalization)
  Sender: FDA-Public Use
  Company Number: FR-JNJFOC-20130506902

PATIENT
  Age: 88 Year
  Sex: Female

DRUGS (2)
  1. RISPERDAL [Suspect]
     Indication: AGGRESSION
     Route: 065
     Dates: start: 20120410, end: 20120426
  2. ZYPREXA [Suspect]
     Indication: PRODUCT USED FOR UNKNOWN INDICATION
     Route: 065
     Dates: start: 20120426, end: 20120510

REACTIONS (2)
  - Hepatocellular injury [Recovered/Resolved]
  - Somnolence [Unknown]
